FAERS Safety Report 14128687 (Version 1)
Quarter: 2017Q4

REPORT INFORMATION
  Report Type: Spontaneous
  Country: US (occurrence: None)
  Receive Date: 20171026
  Receipt Date: 20171026
  Transmission Date: 20180321
  Serious: No
  Sender: FDA-Public Use
  Company Number: None

PATIENT

DRUGS (2)
  1. EPINEPHRINE. [Suspect]
     Active Substance: EPINEPHRINE
     Dosage: SC AND IM?VIAL
     Route: 058
  2. ADRENALIN [Suspect]
     Active Substance: EPINEPHRINE
     Dosage: IM OR SQ  SINGLE USE VIAL
     Route: 030

REACTIONS (1)
  - Product label issue [None]
